FAERS Safety Report 18600283 (Version 2)
Quarter: 2020Q4

REPORT INFORMATION
  Report Type: Spontaneous
  Country: US (occurrence: US)
  Receive Date: 20201210
  Receipt Date: 20201215
  Transmission Date: 20210114
  Serious: No
  Sender: FDA-Public Use
  Company Number: NVSC2020US327982

PATIENT
  Sex: Female

DRUGS (2)
  1. XIIDRA [Suspect]
     Active Substance: LIFITEGRAST
     Indication: DRY EYE
     Dosage: UNK UNK, BID, DROP
     Route: 042
  2. XIIDRA [Suspect]
     Active Substance: LIFITEGRAST
     Route: 042

REACTIONS (1)
  - Dysgeusia [Recovered/Resolved]
